FAERS Safety Report 23824967 (Version 2)
Quarter: 2024Q2

REPORT INFORMATION
  Report Type: Spontaneous
  Country: US (occurrence: US)
  Receive Date: 20240507
  Receipt Date: 20240516
  Transmission Date: 20240715
  Serious: Yes (Other)
  Sender: FDA-Public Use
  Company Number: US-Central Admixture Pharmacy Services, Inc.-2156594

PATIENT
  Age: 1 Day
  Sex: Male
  Weight: 1.01 kg

DRUGS (1)
  1. AMINO ACIDS\CALCIUM GLUCONATE MONOHYDRATE\DEXTROSE MONOHYDRATE\HEPARIN [Suspect]
     Active Substance: AMINO ACIDS\CALCIUM GLUCONATE MONOHYDRATE\DEXTROSE MONOHYDRATE\HEPARIN SODIUM
     Indication: Parenteral nutrition
     Route: 041
     Dates: start: 20240419, end: 20240419

REACTIONS (1)
  - Hyperglycaemia [Recovered/Resolved]

NARRATIVE: CASE EVENT DATE: 20240419
